FAERS Safety Report 7407692-3 (Version None)
Quarter: 2011Q2

REPORT INFORMATION
  Report Type: 
  Country: None (occurrence: None)
  Receive Date: 20110412
  Receipt Date: 20110407
  Transmission Date: 20111010
  Serious: Yes (Life-Threatening)
  Sender: FDA-Public Use
  Company Number: US-ASTRAZENECA-2011SE03980

PATIENT
  Age: 54 Year
  Sex: Female
  Weight: 48.5 kg

DRUGS (11)
  1. SEROQUEL [Suspect]
     Route: 048
     Dates: start: 20040101
  2. SEROQUEL [Suspect]
     Route: 048
     Dates: start: 20040101
  3. SYNTHROID [Concomitant]
  4. SEROQUEL [Suspect]
     Route: 048
     Dates: start: 20030101
  5. SEROQUEL [Suspect]
     Indication: SLEEP DISORDER
     Route: 048
  6. OXYCODONE [Concomitant]
  7. SEROQUEL [Suspect]
     Indication: BIPOLAR DISORDER
     Route: 048
  8. SEROQUEL [Suspect]
     Route: 048
     Dates: start: 20030101
  9. SOMA [Concomitant]
  10. NEURONTIN [Concomitant]
  11. VALIUM [Concomitant]

REACTIONS (6)
  - NEUROPATHY PERIPHERAL [None]
  - FIBROMYALGIA [None]
  - LETHARGY [None]
  - DRUG INEFFECTIVE [None]
  - MANTLE CELL LYMPHOMA [None]
  - FATIGUE [None]
